FAERS Safety Report 21019214 (Version 1)
Quarter: 2022Q2

REPORT INFORMATION
  Report Type: Spontaneous
  Country: US (occurrence: US)
  Receive Date: 20220628
  Receipt Date: 20220628
  Transmission Date: 20220721
  Serious: Yes (Other)
  Sender: FDA-Public Use
  Company Number: US-PFIZER INC-202200902458

PATIENT
  Age: 73 Year
  Sex: Male
  Weight: 77.11 kg

DRUGS (1)
  1. PAXLOVID [Suspect]
     Active Substance: NIRMATRELVIR\RITONAVIR
     Indication: COVID-19 treatment
     Dosage: 6 DF, 1X/DAY (6 PILLS A DAY, 3 IN THE MORNGING AND 3 AT NIGHT)
     Dates: start: 20220622, end: 20220624

REACTIONS (7)
  - Near death experience [Unknown]
  - Sperm concentration decreased [Unknown]
  - Diarrhoea [Unknown]
  - Dehydration [Unknown]
  - Dysgeusia [Unknown]
  - Product taste abnormal [Unknown]
  - Dizziness [Unknown]
